FAERS Safety Report 5933668-9 (Version None)
Quarter: 2008Q4

REPORT INFORMATION
  Report Type: 
  Country: None (occurrence: None)
  Receive Date: 20081027
  Receipt Date: 20081015
  Transmission Date: 20090506
  Serious: Yes (Other)
  Sender: FDA-Public Use
  Company Number: 2008-03938

PATIENT
  Sex: Male

DRUGS (2)
  1. VELCADE [Suspect]
     Indication: DRUG USE FOR UNKNOWN INDICATION
     Dosage: UNKN
     Route: 042
  2. DEXAMETHASONE [Concomitant]

REACTIONS (2)
  - CHEST PAIN [None]
  - NEUROPATHY PERIPHERAL [None]
